FAERS Safety Report 11144519 (Version 1)
Quarter: 2015Q2

REPORT INFORMATION
  Report Type: Spontaneous
  Country: US (occurrence: None)
  Receive Date: 20150526
  Receipt Date: 20150526
  Transmission Date: 20150821
  Serious: Yes (Hospitalization)
  Sender: FDA-Public Use
  Company Number: None

PATIENT
  Age: 8 Year
  Sex: Female
  Weight: 29.94 kg

DRUGS (7)
  1. PREDNISONE. [Concomitant]
     Active Substance: PREDNISONE
  2. AUGMENTIN [Suspect]
     Active Substance: AMOXICILLIN\CLAVULANATE POTASSIUM
     Indication: STAPHYLOCOCCAL INFECTION
     Dosage: 15ML  THREE TIMES DAILY  TAKEN BY MOUTH
     Route: 048
     Dates: start: 20150503, end: 20150510
  3. VITAMIN C [Concomitant]
     Active Substance: ASCORBIC ACID
  4. AUGMENTIN [Suspect]
     Active Substance: AMOXICILLIN\CLAVULANATE POTASSIUM
     Indication: STREPTOCOCCAL INFECTION
     Dosage: 15ML  THREE TIMES DAILY  TAKEN BY MOUTH
     Route: 048
     Dates: start: 20150503, end: 20150510
  5. CHILDREN^S MULTI [Concomitant]
  6. FAMOTIDINE. [Concomitant]
     Active Substance: FAMOTIDINE
  7. HYDROXYZINE [Concomitant]
     Active Substance: HYDROXYZINE\HYDROXYZINE HYDROCHLORIDE

REACTIONS (2)
  - Drug reaction with eosinophilia and systemic symptoms [None]
  - Shock [None]

NARRATIVE: CASE EVENT DATE: 20150510
